FAERS Safety Report 14987614 (Version 5)
Quarter: 2018Q3

REPORT INFORMATION
  Report Type: Spontaneous
  Country: NL (occurrence: NL)
  Receive Date: 20180608
  Receipt Date: 20180716
  Transmission Date: 20181010
  Serious: Yes (Death, Hospitalization, Other)
  Sender: FDA-Public Use
  Company Number: PHHY2018NL041057

PATIENT
  Age: 73 Year
  Sex: Female

DRUGS (4)
  1. MYCOPHENOLATE MOFETIL. [Suspect]
     Active Substance: MYCOPHENOLATE MOFETIL
     Indication: PEMPHIGOID
     Dosage: UNK
     Route: 065
  2. PREDNISOLONE. [Suspect]
     Active Substance: PREDNISOLONE
     Indication: IMMUNOSUPPRESSANT DRUG THERAPY
     Dosage: 35 MG, QD
     Route: 065
  3. RITUXIMAB. [Suspect]
     Active Substance: RITUXIMAB
     Indication: PEMPHIGOID
     Dosage: 500 MG, UNK (ON DAYS 1 AND 15)
     Route: 065
  4. PREDNISOLONE. [Suspect]
     Active Substance: PREDNISOLONE
     Indication: PEMPHIGOID
     Dosage: 7.5 MG/KG, UNK
     Route: 065

REACTIONS (12)
  - Intentional product use issue [Fatal]
  - Diarrhoea [Unknown]
  - Drug ineffective [Unknown]
  - Death [Fatal]
  - Leukopenia [Fatal]
  - Off label use [Fatal]
  - Multiple organ dysfunction syndrome [Fatal]
  - Product use in unapproved indication [Unknown]
  - Sepsis [Fatal]
  - Neutropenia [Fatal]
  - Urinary tract infection [Fatal]
  - Loss of consciousness [Unknown]
